FAERS Safety Report 17425189 (Version 2)
Quarter: 2020Q1

REPORT INFORMATION
  Report Type: Spontaneous
  Country: LU (occurrence: FR)
  Receive Date: 20200218
  Receipt Date: 20200302
  Transmission Date: 20200409
  Serious: Yes (Hospitalization, Other)
  Sender: FDA-Public Use
  Company Number: FR-AUROBINDO-AUR-APL-2020-007821

PATIENT
  Sex: Female

DRUGS (5)
  1. LYRICA [Suspect]
     Active Substance: PREGABALIN
     Indication: PRODUCT USED FOR UNKNOWN INDICATION
     Dosage: 75 MILLIGRAM, TWO TIMES A DAY,  (75 MG 2 TIMES PER DAY)
     Route: 065
  2. LYRICA [Suspect]
     Active Substance: PREGABALIN
     Dosage: 100 MILLIGRAM, 3 TIMES A DAY, (100 MG MORNING, 100MG MIDDAY, 100MG EVENING)
     Route: 065
     Dates: start: 2016
  3. SEROXAT [Suspect]
     Active Substance: PAROXETINE HYDROCHLORIDE
     Indication: PRODUCT USED FOR UNKNOWN INDICATION
     Dosage: UNK
     Route: 065
  4. DULOXETINE. [Suspect]
     Active Substance: DULOXETINE
     Indication: PRODUCT USED FOR UNKNOWN INDICATION
     Dosage: UNK
     Route: 065
  5. LYRICA [Suspect]
     Active Substance: PREGABALIN
     Dosage: 100 MILLIGRAM, TWO TIMES A DAY, (100MG MORNING AND 100MG EVENING)
     Route: 065

REACTIONS (3)
  - Acute pulmonary oedema [Unknown]
  - Nervous system disorder [Not Recovered/Not Resolved]
  - Hyperaesthesia [Unknown]

NARRATIVE: CASE EVENT DATE: 201807
